FAERS Safety Report 5764385-6 (Version None)
Quarter: 2008Q2

REPORT INFORMATION
  Report Type: 
  Country: None (occurrence: None)
  Receive Date: 20080610
  Receipt Date: 20080602
  Transmission Date: 20081010
  Serious: Yes (Other)
  Sender: FDA-Public Use
  Company Number: PL-ABBOTT-08P-129-0454553-00

PATIENT
  Sex: Male
  Weight: 15 kg

DRUGS (1)
  1. KLACID SUSPENSION [Suspect]
     Indication: PHARYNGEAL INFLAMMATION
     Dosage: 250MG/10MG DAILY
     Route: 048
     Dates: start: 20080429, end: 20080429

REACTIONS (2)
  - OEDEMA [None]
  - RASH PAPULAR [None]
